FAERS Safety Report 20140739 (Version 1)
Quarter: 2021Q4

REPORT INFORMATION
  Report Type: Spontaneous
  Country: BR (occurrence: BR)
  Receive Date: 20211202
  Receipt Date: 20211202
  Transmission Date: 20220303
  Serious: Yes (Other)
  Sender: FDA-Public Use
  Company Number: BR-NOVARTISPH-NVSC2020BR209681

PATIENT
  Sex: Female

DRUGS (1)
  1. TIMOLOL MALEATE\TRAVOPROST [Suspect]
     Active Substance: TIMOLOL MALEATE\TRAVOPROST
     Indication: Glaucoma
     Dosage: MORE THAN 3 YEARS TO MORE THAN 1 MONTH AGO
     Route: 065
     Dates: end: 2020

REACTIONS (2)
  - Intraocular pressure increased [Not Recovered/Not Resolved]
  - Product supply issue [Unknown]
